FAERS Safety Report 9887997 (Version 1)
Quarter: 2014Q1

REPORT INFORMATION
  Report Type: Spontaneous
  Country: US (occurrence: None)
  Receive Date: 20140207
  Receipt Date: 20140207
  Transmission Date: 20141002
  Serious: Yes (Hospitalization)
  Sender: FDA-Public Use
  Company Number: None

PATIENT
  Age: 57 Year
  Sex: Male
  Weight: 71.4 kg

DRUGS (1)
  1. LISINOPRIL [Suspect]
     Indication: HYPERTENSION
     Route: 048
     Dates: start: 20040923, end: 20131103

REACTIONS (5)
  - Swollen tongue [None]
  - Angioedema [None]
  - Hypomagnesaemia [None]
  - Hypocalcaemia [None]
  - Hypokalaemia [None]
